FAERS Safety Report 11840029 (Version 1)
Quarter: 2015Q4

REPORT INFORMATION
  Report Type: Spontaneous
  Country: US (occurrence: None)
  Receive Date: 20151215
  Receipt Date: 20151215
  Transmission Date: 20160305
  Serious: No
  Sender: FDA-Public Use
  Company Number: None

PATIENT
  Age: 67 Year
  Sex: Male
  Weight: 119.1 kg

DRUGS (2)
  1. REGADENOSON [Suspect]
     Active Substance: REGADENOSON
     Indication: CARDIOVASCULAR DISORDER
     Route: 042
     Dates: start: 20151112, end: 20151112
  2. REGADENOSON [Suspect]
     Active Substance: REGADENOSON
     Indication: SURGERY
     Route: 042
     Dates: start: 20151112, end: 20151112

REACTIONS (3)
  - Mydriasis [None]
  - Anaphylactic reaction [None]
  - Pain in jaw [None]

NARRATIVE: CASE EVENT DATE: 20151112
